FAERS Safety Report 13473704 (Version 3)
Quarter: 2019Q4

REPORT INFORMATION
  Report Type: Spontaneous
  Country: US (occurrence: US)
  Receive Date: 20170424
  Receipt Date: 20191213
  Transmission Date: 20200122
  Serious: No
  Sender: FDA-Public Use
  Company Number: US-BIOGEN-2017BI00389541

PATIENT
  Sex: Female

DRUGS (17)
  1. TECFIDERA [Suspect]
     Active Substance: DIMETHYL FUMARATE
     Dosage: STARTING DOSE
     Route: 048
  2. AVONEX [Suspect]
     Active Substance: INTERFERON BETA-1A
  3. AVONEX [Suspect]
     Active Substance: INTERFERON BETA-1A
  4. TECFIDERA [Suspect]
     Active Substance: DIMETHYL FUMARATE
     Dosage: MAINTENANCE DOSE
     Route: 048
  5. AMPYRA [Suspect]
     Active Substance: DALFAMPRIDINE
     Indication: GAIT DISTURBANCE
     Route: 048
  6. AVONEX [Suspect]
     Active Substance: INTERFERON BETA-1A
  7. AVONEX [Suspect]
     Active Substance: INTERFERON BETA-1A
  8. AVONEX [Suspect]
     Active Substance: INTERFERON BETA-1A
     Indication: MULTIPLE SCLEROSIS
     Route: 030
  9. AVONEX [Suspect]
     Active Substance: INTERFERON BETA-1A
  10. AVONEX [Suspect]
     Active Substance: INTERFERON BETA-1A
  11. AVONEX [Suspect]
     Active Substance: INTERFERON BETA-1A
  12. AVONEX [Suspect]
     Active Substance: INTERFERON BETA-1A
  13. TECFIDERA [Suspect]
     Active Substance: DIMETHYL FUMARATE
     Indication: MULTIPLE SCLEROSIS
     Route: 050
     Dates: start: 20150630
  14. AVONEX [Suspect]
     Active Substance: INTERFERON BETA-1A
  15. AVONEX [Suspect]
     Active Substance: INTERFERON BETA-1A
  16. AVONEX [Suspect]
     Active Substance: INTERFERON BETA-1A
  17. AVONEX [Suspect]
     Active Substance: INTERFERON BETA-1A

REACTIONS (1)
  - Memory impairment [Not Recovered/Not Resolved]
